FAERS Safety Report 8365620-0 (Version None)
Quarter: 2012Q2

REPORT INFORMATION
  Report Type: 
  Country: None (occurrence: None)
  Receive Date: 20120516
  Receipt Date: 20120511
  Transmission Date: 20120825
  Serious: Yes (Hospitalization, Disabling, Other)
  Sender: FDA-Public Use
  Company Number: US-MERCK-1110USA00179

PATIENT
  Age: 45 Year
  Sex: Female
  Weight: 69 kg

DRUGS (10)
  1. FOSAMAX [Suspect]
     Route: 048
     Dates: start: 20080226, end: 20080723
  2. ALENDRONATE SODIUM [Suspect]
     Indication: OSTEOPENIA
     Route: 048
     Dates: start: 20081201, end: 20100901
  3. FOSAMAX [Suspect]
     Route: 048
     Dates: start: 20010601, end: 20011101
  4. LOTREL [Concomitant]
     Indication: ESSENTIAL HYPERTENSION
     Route: 065
  5. FOSAMAX [Suspect]
     Indication: OSTEOPENIA
     Route: 048
     Dates: start: 20011201, end: 20071201
  6. FOSAMAX [Suspect]
     Route: 048
     Dates: start: 20080226, end: 20080723
  7. ALENDRONATE SODIUM [Suspect]
     Indication: OSTEOPOROSIS
     Route: 048
     Dates: start: 20081201, end: 20100901
  8. ESTRADIOL [Concomitant]
     Indication: HOT FLUSH
     Route: 065
  9. FOSAMAX [Suspect]
     Indication: OSTEOPOROSIS
     Route: 048
     Dates: start: 20011201, end: 20071201
  10. FOSAMAX [Suspect]
     Route: 048
     Dates: start: 20010601, end: 20011101

REACTIONS (74)
  - NECK PAIN [None]
  - SUICIDAL IDEATION [None]
  - CONSTIPATION [None]
  - HYPERLIPIDAEMIA [None]
  - PALPITATIONS [None]
  - VERTIGO [None]
  - TRICHOMONIASIS [None]
  - DRUG ERUPTION [None]
  - ARACHNOIDITIS [None]
  - BACK PAIN [None]
  - ABDOMINAL PAIN [None]
  - COSTOCHONDRITIS [None]
  - SPINAL OSTEOARTHRITIS [None]
  - CARDIAC VALVE DISEASE [None]
  - IMPAIRED FASTING GLUCOSE [None]
  - RENAL CYST [None]
  - URINARY TRACT INFECTION [None]
  - OSTEOARTHRITIS [None]
  - HYPOTHYROIDISM [None]
  - LIGAMENT SPRAIN [None]
  - DRUG HYPERSENSITIVITY [None]
  - DEPRESSION [None]
  - UPPER RESPIRATORY TRACT INFECTION [None]
  - INTERVERTEBRAL DISC DEGENERATION [None]
  - HEPATIC CYST [None]
  - GASTRIC ULCER [None]
  - PEPTIC ULCER [None]
  - ROTATOR CUFF SYNDROME [None]
  - LUNG NEOPLASM [None]
  - ASTHMA [None]
  - TEMPOROMANDIBULAR JOINT SYNDROME [None]
  - CERVICOBRACHIAL SYNDROME [None]
  - GASTRITIS [None]
  - PAIN IN EXTREMITY [None]
  - MUSCLE SPASMS [None]
  - TENDONITIS [None]
  - LUMBAR RADICULOPATHY [None]
  - ADVERSE EVENT [None]
  - BREAST CYST [None]
  - HAEMORRHOIDS [None]
  - OPTIC NEURITIS [None]
  - THYROID NEOPLASM [None]
  - SYNOVIAL CYST [None]
  - DIVERTICULUM INTESTINAL [None]
  - DENTAL CARIES [None]
  - PHARYNGITIS [None]
  - CARDIAC VALVE SCLEROSIS [None]
  - HELICOBACTER GASTRITIS [None]
  - VENTRICULAR TACHYCARDIA [None]
  - VITAMIN D DEFICIENCY [None]
  - SINUSITIS [None]
  - SCOLIOSIS [None]
  - FAECALITH [None]
  - BRONCHITIS CHRONIC [None]
  - VASCULAR CALCIFICATION [None]
  - BACK DISORDER [None]
  - TACHYCARDIA [None]
  - BURNING SENSATION [None]
  - POLLAKIURIA [None]
  - VULVOVAGINAL CANDIDIASIS [None]
  - URINARY RETENTION [None]
  - TOOTH DISORDER [None]
  - MYALGIA [None]
  - NEPHROLITHIASIS [None]
  - BONE INFARCTION [None]
  - OSTEONECROSIS OF JAW [None]
  - INTERVERTEBRAL DISC PROTRUSION [None]
  - BLOOD CHOLESTEROL INCREASED [None]
  - HEADACHE [None]
  - GASTROOESOPHAGEAL REFLUX DISEASE [None]
  - VAGINAL DISCHARGE [None]
  - MITRAL VALVE INCOMPETENCE [None]
  - EPIGASTRIC DISCOMFORT [None]
  - FIBROADENOMA OF BREAST [None]
